FAERS Safety Report 4913118-1 (Version None)
Quarter: 2006Q1

REPORT INFORMATION
  Report Type: 
  Country: None (occurrence: None)
  Receive Date: 20060210
  Receipt Date: 20060130
  Transmission Date: 20060701
  Serious: Yes (Life-Threatening, Hospitalization, Other)
  Sender: FDA-Public Use
  Company Number: PHBS2006TW01667

PATIENT
  Age: 32 Year
  Sex: Female

DRUGS (6)
  1. VALPROIC ACID [Suspect]
     Indication: BIPOLAR II DISORDER
     Dosage: 1000 MG/DAY
     Dates: start: 20041001, end: 20041030
  2. VALPROIC ACID [Suspect]
     Indication: BIPOLAR II DISORDER
     Dosage: 1000 MG/DAY
     Dates: start: 20030101
  3. TRAZODONE (NGX) (TRAZODONE) [Suspect]
     Indication: BIPOLAR II DISORDER
     Dosage: 100 MG/DAY; 200 MG/DAY
     Dates: start: 20030101
  4. TRAZODONE (NGX) (TRAZODONE) [Suspect]
     Indication: BIPOLAR II DISORDER
     Dosage: 100 MG/DAY; 200 MG/DAY
     Dates: start: 20041001
  5. LAMOTRIGINE (NGX)(LAMOTRIGINE) [Suspect]
     Indication: BIPOLAR II DISORDER
     Dosage: 12.5 MG/DAY; 25 MG/DAY
     Dates: start: 20041015, end: 20041028
  6. LAMOTRIGINE (NGX)(LAMOTRIGINE) [Suspect]
     Indication: BIPOLAR II DISORDER
     Dosage: 12.5 MG/DAY; 25 MG/DAY
     Dates: start: 20041029, end: 20041030

REACTIONS (44)
  - ANAEMIA [None]
  - BLISTER [None]
  - BLOOD PRESSURE DECREASED [None]
  - BLOOD PRESSURE DIASTOLIC DECREASED [None]
  - C-REACTIVE PROTEIN INCREASED [None]
  - CHEST X-RAY ABNORMAL [None]
  - CONJUNCTIVAL EROSION [None]
  - DEPRESSED LEVEL OF CONSCIOUSNESS [None]
  - DEPRESSION [None]
  - DRUG LEVEL ABOVE THERAPEUTIC [None]
  - DRUG LEVEL INCREASED [None]
  - DYSPHAGIA [None]
  - ELECTROLYTE IMBALANCE [None]
  - GENERAL PHYSICAL HEALTH DETERIORATION [None]
  - GENERALISED ERYTHEMA [None]
  - GENITAL EROSION [None]
  - HEART RATE INCREASED [None]
  - HEPATIC FUNCTION ABNORMAL [None]
  - HYPERSENSITIVITY [None]
  - HYPOALBUMINAEMIA [None]
  - INFLAMMATION [None]
  - LUNG DISORDER [None]
  - LYMPHADENOPATHY [None]
  - MUCOUS MEMBRANE DISORDER [None]
  - NECROSIS [None]
  - NIKOLSKY'S SIGN [None]
  - ORAL MUCOSA EROSION [None]
  - OXYGEN SATURATION ABNORMAL [None]
  - OXYGEN SATURATION DECREASED [None]
  - PHARYNGOLARYNGEAL PAIN [None]
  - PIGMENTATION DISORDER [None]
  - RASH ERYTHEMATOUS [None]
  - RASH GENERALISED [None]
  - RASH PRURITIC [None]
  - RESPIRATORY RATE INCREASED [None]
  - SKIN GRAFT [None]
  - SKIN HAEMORRHAGE [None]
  - SKIN INFLAMMATION [None]
  - SKIN LESION [None]
  - SKIN NECROSIS [None]
  - SUICIDAL IDEATION [None]
  - THROMBOCYTOPENIA [None]
  - TONSILLITIS [None]
  - TOXIC EPIDERMAL NECROLYSIS [None]
